FAERS Safety Report 8062457-7 (Version None)
Quarter: 2012Q1

REPORT INFORMATION
  Report Type: 
  Country: None (occurrence: None)
  Receive Date: 20120123
  Receipt Date: 20120113
  Transmission Date: 20120608
  Serious: Yes (Hospitalization)
  Sender: FDA-Public Use
  Company Number: US-BAYER-2012-004455

PATIENT
  Sex: Female

DRUGS (2)
  1. DROSPIRENONE AND ETHINYL ESTRADIOL [Suspect]
     Dosage: UNK
     Dates: start: 20081101, end: 20090101
  2. YASMIN [Suspect]
     Dosage: UNK
     Dates: start: 20090101, end: 20100310

REACTIONS (9)
  - PAIN [None]
  - CEREBRAL INFARCTION [None]
  - RESPIRATORY FAILURE [None]
  - CONVULSION [None]
  - BRAIN OEDEMA [None]
  - INJURY [None]
  - TRANSVERSE SINUS THROMBOSIS [None]
  - HAEMORRHAGE [None]
  - SUPERIOR SAGITTAL SINUS THROMBOSIS [None]
